FAERS Safety Report 25429993 (Version 1)
Quarter: 2025Q2

REPORT INFORMATION
  Report Type: Spontaneous
  Country: SI (occurrence: SI)
  Receive Date: 20250612
  Receipt Date: 20250612
  Transmission Date: 20250717
  Serious: Yes (Other)
  Sender: BAYER HEALTHCARE PHARMACEUTICALS INC.
  Company Number: None

PATIENT
  Age: 47 Year
  Sex: Female

DRUGS (2)
  1. MIRENA [Suspect]
     Active Substance: LEVONORGESTREL
     Indication: Hormone level abnormal
     Dosage: 20?G/DAY
     Route: 015
     Dates: start: 20250210
  2. ESTRADIOL [Suspect]
     Active Substance: ESTRADIOL
     Indication: Hormone level abnormal
     Dosage: 0.75 MG/PUSHDOSE: 1X/DAY
     Route: 062
     Dates: start: 20250210, end: 20250426

REACTIONS (9)
  - Retinal artery occlusion [Unknown]
  - Visual impairment [Unknown]
  - Headache [Unknown]
  - Retinal vein occlusion [Unknown]
  - Insomnia [Unknown]
  - Erythema [Unknown]
  - Asthenia [Unknown]
  - Headache [Unknown]
  - General physical health deterioration [Unknown]

NARRATIVE: CASE EVENT DATE: 20250101
